FAERS Safety Report 17666207 (Version 1)
Quarter: 2020Q2

REPORT INFORMATION
  Report Type: Spontaneous
  Country: GB (occurrence: GB)
  Receive Date: 20200414
  Receipt Date: 20200414
  Transmission Date: 20200713
  Serious: Yes (Other)
  Sender: FDA-Public Use
  Company Number: GB-COVIS PHARMA B.V.-2020COV00160

PATIENT
  Sex: Male

DRUGS (1)
  1. OMEPRAZOLE MAGNESIUM. [Suspect]
     Active Substance: OMEPRAZOLE MAGNESIUM
     Indication: HIATUS HERNIA
     Dosage: 20 G UNK
     Route: 048
     Dates: start: 2008

REACTIONS (7)
  - Weight decreased [Unknown]
  - Kidney fibrosis [Unknown]
  - Pruritus [Unknown]
  - Renal injury [Unknown]
  - Social avoidant behaviour [Unknown]
  - Off label use [Unknown]
  - Rash [Unknown]

NARRATIVE: CASE EVENT DATE: 2008
